FAERS Safety Report 4679793-4 (Version None)
Quarter: 2005Q2

REPORT INFORMATION
  Report Type: 
  Country: None (occurrence: None)
  Receive Date: 20050602
  Receipt Date: 20040920
  Transmission Date: 20051028
  Serious: Yes (Hospitalization, Congenital Anomaly, Other)
  Sender: FDA-Public Use
  Company Number: GB-MERCK-0409GBR00189B1

PATIENT
  Age: 0 Day
  Sex: Male
  Weight: 4 kg

DRUGS (1)
  1. PROPECIA [Suspect]
     Indication: MALE PATTERN BALDNESS
     Dates: start: 20040701, end: 20040901

REACTIONS (6)
  - CAESAREAN SECTION [None]
  - FOETAL DISTRESS SYNDROME [None]
  - HYDROCELE [None]
  - PLACENTAL DISORDER [None]
  - TRANSMISSION OF DRUG VIA SEMEN [None]
  - URINARY TRACT INFECTION [None]
